FAERS Safety Report 24387897 (Version 2)
Quarter: 2025Q3

REPORT INFORMATION
  Report Type: Spontaneous
  Country: CA (occurrence: CA)
  Receive Date: 20241002
  Receipt Date: 20250803
  Transmission Date: 20251021
  Serious: Yes (Hospitalization, Other)
  Sender: ALEXION PHARMACEUTICALS
  Company Number: CA-AstraZeneca-CH-00711789A

PATIENT
  Age: 79 Year
  Sex: Male

DRUGS (21)
  1. DAPAGLIFLOZIN [Suspect]
     Active Substance: DAPAGLIFLOZIN
  2. QUETIAPINE FUMARATE [Concomitant]
     Active Substance: QUETIAPINE FUMARATE
  3. METFORMIN [Concomitant]
     Active Substance: METFORMIN HYDROCHLORIDE
  4. ASPIRIN [Concomitant]
     Active Substance: ASPIRIN
     Route: 065
  5. CYCLOBENZAPRINE [Concomitant]
     Active Substance: CYCLOBENZAPRINE
  6. SOLU-MEDROL [Concomitant]
     Active Substance: METHYLPREDNISOLONE SODIUM SUCCINATE
     Route: 065
  7. DICLOFENAC [Concomitant]
     Active Substance: DICLOFENAC
     Route: 065
  8. DIMENHYDRINATE [Concomitant]
     Active Substance: DIMENHYDRINATE
     Route: 065
  9. Duloxe [Concomitant]
     Route: 065
  10. FERROUS FUMARATE [Concomitant]
     Active Substance: FERROUS FUMARATE
     Route: 065
  11. GABAPENTIN [Concomitant]
     Active Substance: GABAPENTIN
     Route: 065
  12. HUMALOG [Concomitant]
     Active Substance: INSULIN LISPRO
  13. INSULIN NOS [Concomitant]
     Active Substance: INSULIN NOS
  14. KETOROLAC [Concomitant]
     Active Substance: KETOROLAC TROMETHAMINE
  15. LOPERAMIDE [Concomitant]
     Active Substance: LOPERAMIDE
  16. PANTOPRAZOLE [Concomitant]
     Active Substance: PANTOPRAZOLE
  17. ROSUVASTATIN [Concomitant]
     Active Substance: ROSUVASTATIN
     Route: 065
  18. TERAZOSIN [Concomitant]
     Active Substance: TERAZOSIN HYDROCHLORIDE
     Route: 065
  19. TYLENOL WITH CODEINE [Concomitant]
     Active Substance: ACETAMINOPHEN\CODEINE PHOSPHATE
     Route: 065
  20. VITAMIN C [Concomitant]
     Active Substance: ASCORBIC ACID
  21. VITAMIN D [Concomitant]
     Active Substance: VITAMIN D NOS
     Route: 065

REACTIONS (6)
  - Acute myocardial infarction [Recovered/Resolved]
  - Confusional state [Recovered/Resolved]
  - Euglycaemic diabetic ketoacidosis [Recovered/Resolved]
  - Influenza [Recovered/Resolved]
  - Pneumonia staphylococcal [Recovered/Resolved]
  - Respiratory distress [Recovered/Resolved]
